FAERS Safety Report 8132164-0 (Version None)
Quarter: 2012Q1

REPORT INFORMATION
  Report Type: 
  Country: None (occurrence: None)
  Receive Date: 20120213
  Receipt Date: 20120203
  Transmission Date: 20120608
  Serious: Yes (Other)
  Sender: FDA-Public Use
  Company Number: US-RB-034546-12

PATIENT
  Age: 47 Year
  Sex: Female

DRUGS (2)
  1. MUCINEX DM [Suspect]
     Indication: RESPIRATORY TRACT CONGESTION
     Route: 048
  2. MUCINEX DM [Suspect]
     Indication: INCREASED UPPER AIRWAY SECRETION
     Route: 048

REACTIONS (6)
  - PARANOIA [None]
  - AGGRESSION [None]
  - ANGER [None]
  - SLEEP DISORDER [None]
  - VISUAL IMPAIRMENT [None]
  - FEELING ABNORMAL [None]
